FAERS Safety Report 17316192 (Version 1)
Quarter: 2020Q1

REPORT INFORMATION
  Report Type: Spontaneous
  Country: US (occurrence: US)
  Receive Date: 20200124
  Receipt Date: 20200124
  Transmission Date: 20200409
  Serious: No
  Sender: FDA-Public Use
  Company Number: US-SUNOVION-2020SUN000177

PATIENT
  Age: 15 Year
  Sex: Male
  Weight: 52.15 kg

DRUGS (2)
  1. ABILIFY [Suspect]
     Active Substance: ARIPIPRAZOLE
     Dosage: 10 MG, TID
     Dates: end: 20191128
  2. LATUDA [Suspect]
     Active Substance: LURASIDONE HYDROCHLORIDE
     Indication: SCHIZOAFFECTIVE DISORDER BIPOLAR TYPE
     Dosage: 40 MG, QD
     Route: 048
     Dates: start: 20191212, end: 20200105

REACTIONS (3)
  - Dyskinesia [Not Recovered/Not Resolved]
  - Off label use [Unknown]
  - Muscle spasticity [Not Recovered/Not Resolved]

NARRATIVE: CASE EVENT DATE: 20191212
